FAERS Safety Report 7391111-X (Version None)
Quarter: 2011Q2

REPORT INFORMATION
  Report Type: 
  Country: None (occurrence: None)
  Receive Date: 20110404
  Receipt Date: 20110322
  Transmission Date: 20111010
  Serious: Yes (Hospitalization)
  Sender: FDA-Public Use
  Company Number: AU-ELI_LILLY_AND_COMPANY-AU201102004483

PATIENT
  Age: 38 Year
  Sex: Male
  Weight: 80.6 kg

DRUGS (4)
  1. ZYPREXA ZYDIS [Suspect]
     Indication: SCHIZOPHRENIA
     Dosage: 10 MG, TID
     Route: 048
  2. LIPITOR [Concomitant]
     Dosage: UNK
  3. CEVOZYL [Concomitant]
     Dosage: UNK
  4. PLAVIX [Concomitant]
     Dosage: UNK

REACTIONS (3)
  - BLOOD CHOLESTEROL INCREASED [None]
  - OVERDOSE [None]
  - ACUTE MYOCARDIAL INFARCTION [None]
